FAERS Safety Report 5129935-1 (Version None)
Quarter: 2006Q4

REPORT INFORMATION
  Report Type: 
  Country: None (occurrence: None)
  Receive Date: 20061012
  Receipt Date: 20060929
  Transmission Date: 20070319
  Serious: Yes (Hospitalization)
  Sender: FDA-Public Use
  Company Number: US-SOLVAY-00206003193

PATIENT
  Sex: Male

DRUGS (1)
  1. ROWASA [Suspect]
     Indication: COLITIS
     Dosage: INTRA-UTERINE
     Route: 015
     Dates: start: 19980301, end: 19981201

REACTIONS (7)
  - ABDOMINAL PAIN [None]
  - DRUG EXPOSURE DURING PREGNANCY [None]
  - DRUG EXPOSURE VIA BREAST MILK [None]
  - INSOMNIA [None]
  - IRRITABILITY [None]
  - NAUSEA [None]
  - NEPHRITIC SYNDROME [None]
